FAERS Safety Report 4663306-7 (Version None)
Quarter: 2005Q2

REPORT INFORMATION
  Report Type: 
  Country: None (occurrence: None)
  Receive Date: 20050517
  Receipt Date: 20050425
  Transmission Date: 20051028
  Serious: Yes (Other)
  Sender: FDA-Public Use
  Company Number: JP-BOEHRINGER INGELHEIM PHARMACEUTICALS, INC.-2005-BP-06842NB

PATIENT
  Sex: Female
  Weight: 42 kg

DRUGS (9)
  1. MICARDIS [Suspect]
     Indication: HYPERTENSION
     Route: 048
     Dates: start: 20050204, end: 20050319
  2. FERROMIA [Concomitant]
     Indication: IRON DEFICIENCY ANAEMIA
     Route: 048
     Dates: start: 20010525
  3. MUCOSTA [Concomitant]
     Indication: GASTRITIS
     Route: 048
     Dates: start: 20010525
  4. AMLODIPINE BESYLATE [Concomitant]
     Indication: HYPERTENSION
     Route: 048
     Dates: start: 20011109
  5. GLUCOBAY [Concomitant]
     Indication: DIABETES MELLITUS
     Route: 048
  6. INSULIN [Concomitant]
     Indication: DIABETES MELLITUS
     Route: 058
  7. SANPILO [Concomitant]
     Indication: GLAUCOMA
     Route: 031
  8. TIMOPTIC [Concomitant]
     Indication: GLAUCOMA
     Route: 031
  9. XALATAN [Concomitant]
     Indication: GLAUCOMA
     Route: 031

REACTIONS (1)
  - HYPERGLYCAEMIA [None]
